FAERS Safety Report 5372484-6 (Version None)
Quarter: 2007Q2

REPORT INFORMATION
  Report Type: 
  Country: None (occurrence: None)
  Receive Date: 20070625
  Receipt Date: 20070614
  Transmission Date: 20071010
  Serious: Yes (Hospitalization)
  Sender: FDA-Public Use
  Company Number: 47128

PATIENT
  Age: 9 Month
  Sex: Female

DRUGS (2)
  1. ACETAMINOPHEN [Suspect]
     Indication: MALAISE
     Dosage: 15MG/KG Q6H X 2DAYS/ ORAL
     Route: 048
  2. ACETAMINOPHEN [Suspect]
     Indication: VOMITING
     Dosage: 15MG/KG Q6H X 2DAYS/ ORAL
     Route: 048

REACTIONS (9)
  - 5-HYDROXYINDOLACETIC ACID IN URINE [None]
  - CONFUSIONAL STATE [None]
  - DIARRHOEA [None]
  - HEPATOMEGALY [None]
  - HEPATOTOXICITY [None]
  - MENTAL STATUS CHANGES [None]
  - METABOLIC ACIDOSIS [None]
  - NORMOCHROMIC NORMOCYTIC ANAEMIA [None]
  - RETICULOCYTOSIS [None]
